FAERS Safety Report 24832908 (Version 2)
Quarter: 2025Q1

REPORT INFORMATION
  Report Type: Report from Study
  Country: US (occurrence: US)
  Receive Date: 20250111
  Receipt Date: 20250125
  Transmission Date: 20250409
  Serious: Yes (Hospitalization)
  Sender: ABBVIE
  Company Number: US-ABBVIE-6078689

PATIENT
  Age: 84 Year
  Sex: Female
  Weight: 61 kg

DRUGS (1)
  1. CREON [Suspect]
     Active Substance: PANCRELIPASE AMYLASE\PANCRELIPASE LIPASE\PANCRELIPASE PROTEASE
     Indication: Dyspepsia
     Route: 048
     Dates: start: 202410

REACTIONS (3)
  - Oxygen saturation decreased [Not Recovered/Not Resolved]
  - Productive cough [Not Recovered/Not Resolved]
  - Pancreatic disorder [Unknown]

NARRATIVE: CASE EVENT DATE: 20241219
